FAERS Safety Report 21501431 (Version 4)
Quarter: 2022Q4

REPORT INFORMATION
  Report Type: Spontaneous
  Country: AU (occurrence: AU)
  Receive Date: 20221025
  Receipt Date: 20221116
  Transmission Date: 20230113
  Serious: Yes (Hospitalization)
  Sender: FDA-Public Use
  Company Number: AU-JNJFOC-20221037525

PATIENT
  Age: 68 Year
  Sex: Female
  Weight: 64 kg

DRUGS (21)
  1. DARZALEX [Suspect]
     Active Substance: DARATUMUMAB
     Indication: Plasma cell myeloma
     Route: 058
     Dates: start: 20220822
  2. CEVOSTAMAB [Suspect]
     Active Substance: CEVOSTAMAB
     Indication: Plasma cell myeloma
     Dosage: 160 MG (0.3 MG, ONCE)
     Route: 042
     Dates: start: 20220823
  3. DEXAMETHASONE [Suspect]
     Active Substance: DEXAMETHASONE
     Indication: Plasma cell myeloma
     Route: 042
     Dates: start: 20220822
  4. TOCILIZUMAB [Suspect]
     Active Substance: TOCILIZUMAB
     Indication: Plasma cell myeloma
     Route: 065
     Dates: start: 20220823
  5. ALLOPURINOL [Concomitant]
     Active Substance: ALLOPURINOL
  6. CHOLECALCIFEROL [Concomitant]
     Active Substance: CHOLECALCIFEROL
  7. ENOXAPARIN [Concomitant]
     Active Substance: ENOXAPARIN
     Indication: Deep vein thrombosis
     Route: 058
     Dates: start: 20220423, end: 20220907
  8. MIDAZOLAM [Concomitant]
     Active Substance: MIDAZOLAM
     Indication: Biopsy bone marrow
     Route: 042
     Dates: start: 20220817, end: 20220817
  9. IOHEXOL [Concomitant]
     Active Substance: IOHEXOL
     Indication: Product used for unknown indication
     Route: 013
     Dates: start: 20220817, end: 20220817
  10. MAGNESIUM ASPARTATE [Concomitant]
     Active Substance: MAGNESIUM ASPARTATE
     Indication: Electrolyte substitution therapy
     Route: 048
     Dates: start: 2010
  11. OXYCODONE [Concomitant]
     Active Substance: OXYCODONE
     Indication: Arteriovenous fistula site haemorrhage
     Route: 048
     Dates: start: 20220818, end: 20220818
  12. PANTOPRAZOLE [Concomitant]
     Active Substance: PANTOPRAZOLE
     Indication: Product used for unknown indication
     Route: 048
     Dates: start: 20220824
  13. ACETAMINOPHEN [Concomitant]
     Active Substance: ACETAMINOPHEN
     Indication: Arteriovenous fistula site haemorrhage
     Route: 048
     Dates: start: 20220816, end: 20220819
  14. ACETAMINOPHEN [Concomitant]
     Active Substance: ACETAMINOPHEN
     Indication: Pain
     Route: 048
     Dates: start: 20220822, end: 20220822
  15. RASBURICASE [Concomitant]
     Active Substance: RASBURICASE
     Indication: Product used for unknown indication
     Route: 042
     Dates: start: 20220823, end: 20220823
  16. BACTRIM [Concomitant]
     Active Substance: SULFAMETHOXAZOLE\TRIMETHOPRIM
     Indication: Pneumocystis jirovecii pneumonia
     Route: 048
     Dates: start: 20220823
  17. VALACYCLOVIR HYDROCHLORIDE [Concomitant]
     Active Substance: VALACYCLOVIR HYDROCHLORIDE
     Indication: Product used for unknown indication
     Route: 048
     Dates: start: 2021
  18. ZOMETA [Concomitant]
     Active Substance: ZOLEDRONIC ACID
     Indication: Hypercalcaemia
     Route: 042
     Dates: start: 2021
  19. NYSTATIN [Concomitant]
     Active Substance: NYSTATIN
     Indication: Oral candidiasis
     Route: 048
     Dates: start: 20220830, end: 20220906
  20. BETAMETHASONE [Concomitant]
     Active Substance: BETAMETHASONE
     Indication: Rash
     Route: 061
  21. LORATADINE [Concomitant]
     Active Substance: LORATADINE
     Indication: Rash
     Route: 048
     Dates: start: 20220908, end: 20220910

REACTIONS (4)
  - Spinal cord compression [Unknown]
  - Plasma cell myeloma [Recovering/Resolving]
  - Cytokine release syndrome [Recovered/Resolved]
  - Rash erythematous [Recovered/Resolved]

NARRATIVE: CASE EVENT DATE: 20220823
